FAERS Safety Report 8505466 (Version 3)
Quarter: 2013Q1

REPORT INFORMATION
  Report Type: Report from Study
  Country: CA (occurrence: CA)
  Receive Date: 20120412
  Receipt Date: 20130104
  Transmission Date: 20140127
  Serious: Yes (Other)
  Sender: FDA-Public Use
  Company Number: CA-BRISTOL-MYERS SQUIBB COMPANY-16503963

PATIENT
  Age: 52 Year
  Sex: Female
  Weight: 57 kg

DRUGS (7)
  1. ORENCIA [Suspect]
     Indication: RHEUMATOID ARTHRITIS
     Dosage: NO OF INF:3?LAST ONF:08MAR12
     Route: 042
     Dates: start: 20120209
  2. PREMARIN [Concomitant]
  3. TRAMACET [Concomitant]
  4. PREDNISONE [Concomitant]
  5. ELAVIL [Concomitant]
  6. GABAPENTIN [Concomitant]
  7. CALCIUM + VITAMIN D [Concomitant]

REACTIONS (3)
  - Renal failure [Unknown]
  - Urinary tract infection [Unknown]
  - Therapeutic response decreased [Unknown]
